FAERS Safety Report 25766323 (Version 2)
Quarter: 2025Q4

REPORT INFORMATION
  Report Type: Spontaneous
  Country: US (occurrence: US)
  Receive Date: 20250905
  Receipt Date: 20251201
  Transmission Date: 20260118
  Serious: Yes (Hospitalization)
  Sender: BAYER HEALTHCARE PHARMACEUTICALS INC.
  Company Number: US-BAYER-2025A116983

PATIENT
  Age: 59 Year
  Sex: Male

DRUGS (3)
  1. KOVALTRY [Suspect]
     Active Substance: ANTIHEMOPHILIC FACTOR, HUMAN RECOMBINANT
     Indication: Factor VIII deficiency
     Dosage: KOVALTRY 3000/ INFUSE 3300 UNITS (2970-3630),  SLOW IV PUSH
     Route: 042
  2. KOVALTRY [Suspect]
     Active Substance: ANTIHEMOPHILIC FACTOR, HUMAN RECOMBINANT
     Indication: Haemorrhage
     Dosage: KOVALTRY INJ 1000/ INFUSE 1500 UNITS (1350-1650) SLOW IV PUSH EVERY 12 TO 24 HOURS, SLOW IV PUSH
     Route: 042
  3. KOVALTRY [Suspect]
     Active Substance: ANTIHEMOPHILIC FACTOR, HUMAN RECOMBINANT
     Indication: Factor VIII deficiency
     Dosage: KOVALTRY INJ 250
     Route: 042

REACTIONS (3)
  - Limb injury [None]
  - Traumatic haemorrhage [None]
  - Finger amputation [None]

NARRATIVE: CASE EVENT DATE: 20250601
